FAERS Safety Report 24111434 (Version 2)
Quarter: 2024Q3

REPORT INFORMATION
  Report Type: Spontaneous
  Country: CA (occurrence: CA)
  Receive Date: 20240718
  Receipt Date: 20240725
  Transmission Date: 20241017
  Serious: Yes (Other)
  Sender: SANOFI AVENTIS
  Company Number: CA-SA-SAC20240715000035

PATIENT
  Age: 72 Year
  Sex: Female
  Weight: 111.5 kg

DRUGS (6)
  1. ADMELOG [Suspect]
     Active Substance: INSULIN LISPRO
     Indication: Type 2 diabetes mellitus
     Dosage: 22 IU, QD
     Route: 058
  2. ADMELOG [Suspect]
     Active Substance: INSULIN LISPRO
     Dosage: 18 IU, QD
     Route: 058
  3. ADMELOG [Suspect]
     Active Substance: INSULIN LISPRO
     Dosage: 40 IU, QD
     Route: 058
  4. INSULIN ASPART [Suspect]
     Active Substance: INSULIN ASPART
     Indication: Type 2 diabetes mellitus
     Dosage: 34 IU, QD
     Route: 058
  5. INSULIN ASPART [Suspect]
     Active Substance: INSULIN ASPART
     Dosage: 22 IU, QD
     Route: 058
  6. INSULIN ASPART [Suspect]
     Active Substance: INSULIN ASPART
     Dosage: 16 IU, QD
     Route: 058

REACTIONS (7)
  - Dry mouth [Recovered/Resolved]
  - Flank pain [Recovered/Resolved]
  - Chest pain [Recovered/Resolved]
  - Decreased appetite [Recovered/Resolved]
  - Fatigue [Recovered/Resolved]
  - Gastrooesophageal reflux disease [Recovered/Resolved]
  - Palpitations [Recovered/Resolved]
